FAERS Safety Report 7228899-4 (Version None)
Quarter: 2011Q1

REPORT INFORMATION
  Report Type: 
  Country: None (occurrence: None)
  Receive Date: 20110117
  Receipt Date: 20110105
  Transmission Date: 20110831
  Serious: Yes (Hospitalization, Disabling, Other)
  Sender: FDA-Public Use
  Company Number: US-ELI_LILLY_AND_COMPANY-US201004001299

PATIENT
  Sex: Female

DRUGS (14)
  1. SYNTHROID [Concomitant]
     Indication: THYROID DISORDER
     Dosage: 50 UG, DAILY (1/D)
  2. BENAZEPRIL HYDROCHLORIDE [Concomitant]
     Dosage: UNK, DAILY (1/D)
  3. CARDURA [Concomitant]
     Dosage: UNK, EACH MORNING
  4. CALCIUM W/VITAMIN D NOS [Concomitant]
     Dosage: 1200 MG, 2/D
  5. AMLODIPINE [Concomitant]
     Dosage: UNK, DAILY (1/D)
  6. LASIX [Concomitant]
     Dosage: 80 MG, DAILY (1/D)
  7. DARVOCET [Concomitant]
  8. MULTI-VITAMIN [Concomitant]
     Dosage: UNK, DAILY (1/D)
  9. FORTEO [Suspect]
     Dosage: 20 UG, DAILY (1/D)
     Dates: end: 20101214
  10. FORTEO [Suspect]
     Dosage: 20 UG, DAILY (1/D)
  11. NORCO [Concomitant]
     Dosage: UNK, AS NEEDED
  12. PLAVIX [Concomitant]
     Dosage: 75 MG, DAILY (1/D)
  13. FORTEO [Suspect]
     Indication: OSTEOPOROSIS
     Dosage: 20 UG, DAILY (1/D)
  14. ZANTAC [Concomitant]

REACTIONS (15)
  - FALL [None]
  - HUMERUS FRACTURE [None]
  - FRACTURE NONUNION [None]
  - PAIN [None]
  - HYPOAESTHESIA [None]
  - HYPERTENSION [None]
  - POSTOPERATIVE WOUND COMPLICATION [None]
  - THROAT IRRITATION [None]
  - FEAR [None]
  - UPPER LIMB FRACTURE [None]
  - NERVE INJURY [None]
  - IMPAIRED HEALING [None]
  - DEVICE DISLOCATION [None]
  - MUSCULOSKELETAL STIFFNESS [None]
  - DIZZINESS [None]
